FAERS Safety Report 7886525-5 (Version None)
Quarter: 2011Q4

REPORT INFORMATION
  Report Type: 
  Country: None (occurrence: None)
  Receive Date: 20111102
  Receipt Date: 20110707
  Transmission Date: 20120403
  Serious: No
  Sender: FDA-Public Use
  Company Number: US-AMGEN-USASP2011034559

PATIENT
  Sex: Female

DRUGS (1)
  1. ENBREL [Suspect]
     Indication: PSORIATIC ARTHROPATHY
     Dosage: 50 MG, QWK
     Dates: start: 20100629

REACTIONS (8)
  - WEIGHT INCREASED [None]
  - CONTUSION [None]
  - ONYCHOMADESIS [None]
  - NASOPHARYNGITIS [None]
  - SNEEZING [None]
  - SINUS CONGESTION [None]
  - INJECTION SITE HAEMATOMA [None]
  - LETHARGY [None]
